FAERS Safety Report 7422027-8 (Version None)
Quarter: 2011Q2

REPORT INFORMATION
  Report Type: 
  Country: None (occurrence: None)
  Receive Date: 20110418
  Receipt Date: 20110413
  Transmission Date: 20111010
  Serious: Yes (Hospitalization)
  Sender: FDA-Public Use
  Company Number: TR-PFIZER INC-2011074741

PATIENT
  Age: 39 Year
  Sex: Male
  Weight: 71 kg

DRUGS (8)
  1. RAPAMUNE [Suspect]
     Dosage: 2 MG, 1X/DAY
     Route: 048
     Dates: start: 20110131, end: 20110330
  2. SANDIMMUNE [Concomitant]
     Indication: IMMUNOSUPPRESSION
     Dosage: 350 MG, 1X/DAY
     Dates: start: 20110127, end: 20110326
  3. RAPAMUNE [Suspect]
     Dosage: 2 MG, 1X/DAY
     Route: 048
     Dates: start: 20110404, end: 20110404
  4. RAPAMUNE [Suspect]
     Indication: IMMUNOSUPPRESSION
     Dosage: 1 MG, 1X/DAY
     Route: 048
     Dates: start: 20110131, end: 20110131
  5. CELLCEPT [Concomitant]
     Dosage: 1000 MG, 2X/DAY
     Dates: start: 20110325
  6. SANDIMMUNE [Concomitant]
     Dosage: 350 MG, 1X/DAY
     Dates: start: 20110404, end: 20110404
  7. DELTACORTRIL [Suspect]
     Indication: IMMUNOSUPPRESSION
     Dosage: 5 MG, 2X/DAY
     Dates: start: 20110131
  8. CELLCEPT [Concomitant]
     Indication: IMMUNOSUPPRESSION
     Dosage: 1000 MG, 2X/DAY
     Dates: start: 20110125, end: 20110131

REACTIONS (1)
  - KIDNEY TRANSPLANT REJECTION [None]
